FAERS Safety Report 4800389-5 (Version None)
Quarter: 2005Q4

REPORT INFORMATION
  Report Type: 
  Country: None (occurrence: None)
  Receive Date: 20051013
  Receipt Date: 20051004
  Transmission Date: 20060501
  Serious: Yes (Hospitalization, Other)
  Sender: FDA-Public Use
  Company Number: 2005-10-0064

PATIENT
  Age: 40 Year
  Sex: Male

DRUGS (4)
  1. TEMODAL [Suspect]
     Indication: GLIOBLASTOMA MULTIFORME
     Dosage: SEE IMAGE
     Route: 048
     Dates: start: 20040801, end: 20041001
  2. TEMODAL [Suspect]
     Indication: GLIOBLASTOMA MULTIFORME
     Dosage: SEE IMAGE
     Route: 048
     Dates: start: 20040801, end: 20041101
  3. TEMODAL [Suspect]
     Indication: GLIOBLASTOMA MULTIFORME
     Dosage: SEE IMAGE
     Route: 048
     Dates: start: 20041001, end: 20041101
  4. RADIATION THERAPY [Concomitant]

REACTIONS (7)
  - ACUTE LYMPHOCYTIC LEUKAEMIA [None]
  - BLAST CELLS PRESENT [None]
  - GLIOBLASTOMA MULTIFORME [None]
  - HAEMATOTOXICITY [None]
  - NEOPLASM RECURRENCE [None]
  - NEUTROPENIA [None]
  - THROMBOCYTOPENIA [None]
